FAERS Safety Report 4630807-7 (Version None)
Quarter: 2005Q2

REPORT INFORMATION
  Report Type: 
  Country: None (occurrence: None)
  Receive Date: 20050405
  Receipt Date: 20050405
  Transmission Date: 20051028
  Serious: Yes (Hospitalization)
  Sender: FDA-Public Use
  Company Number: None

PATIENT
  Sex: Male
  Weight: 89.3586 kg

DRUGS (7)
  1. FOSAMAX [Suspect]
     Indication: OSTEOPOROSIS
     Dosage: 70MG  WEEKLY   ORAL
     Route: 048
     Dates: start: 20050201, end: 20050330
  2. IMDUR [Concomitant]
  3. LOPRESSOR [Concomitant]
  4. MIACALCIN [Concomitant]
  5. PREDNISONE [Concomitant]
  6. PREVACID [Concomitant]
  7. ASTELIN [Concomitant]

REACTIONS (2)
  - FAECES DISCOLOURED [None]
  - UPPER GASTROINTESTINAL HAEMORRHAGE [None]
